FAERS Safety Report 11261312 (Version 1)
Quarter: 2015Q3

REPORT INFORMATION
  Report Type: Spontaneous
  Country: CH (occurrence: CH)
  Receive Date: 20150710
  Receipt Date: 20150710
  Transmission Date: 20151125
  Serious: Yes (Death, Hospitalization, Other)
  Sender: FDA-Public Use
  Company Number: CH-PFIZER INC-2015226440

PATIENT
  Age: 69 Year
  Sex: Male

DRUGS (1)
  1. AXITINIB [Suspect]
     Active Substance: AXITINIB
     Indication: CLEAR CELL RENAL CELL CARCINOMA
     Dosage: UNK
     Dates: start: 201209

REACTIONS (6)
  - Clear cell renal cell carcinoma [Unknown]
  - Epilepsy [Unknown]
  - Death [Fatal]
  - Pleural effusion [Unknown]
  - General physical health deterioration [Unknown]
  - Disease progression [Unknown]

NARRATIVE: CASE EVENT DATE: 201303
